FAERS Safety Report 4654931-8 (Version None)
Quarter: 2005Q2

REPORT INFORMATION
  Report Type: 
  Country: None (occurrence: None)
  Receive Date: 20050506
  Receipt Date: 20050216
  Transmission Date: 20051028
  Serious: Yes (Hospitalization)
  Sender: FDA-Public Use
  Company Number: US-MERCK-0502USA02347

PATIENT
  Age: 59 Year
  Sex: Male
  Weight: 84 kg

DRUGS (1)
  1. VIOXX [Suspect]
     Indication: BACK PAIN
     Route: 048
     Dates: start: 20020204, end: 20040526

REACTIONS (14)
  - AMNESIA [None]
  - ANXIETY [None]
  - CEREBROVASCULAR ACCIDENT [None]
  - CHRONIC FATIGUE SYNDROME [None]
  - DEPRESSION [None]
  - DIZZINESS [None]
  - EMOTIONAL DISTRESS [None]
  - FLATULENCE [None]
  - GLAUCOMA [None]
  - HAEMORRHOIDS [None]
  - HEADACHE [None]
  - LUMBAR RADICULOPATHY [None]
  - NAUSEA [None]
  - PANIC ATTACK [None]
